FAERS Safety Report 8359664-2 (Version None)
Quarter: 2012Q2

REPORT INFORMATION
  Report Type: 
  Country: None (occurrence: None)
  Receive Date: 20120515
  Receipt Date: 20120510
  Transmission Date: 20120825
  Serious: Yes (Other)
  Sender: FDA-Public Use
  Company Number: VE-PFIZER INC-2012068752

PATIENT
  Age: 79 Year
  Sex: Female

DRUGS (1)
  1. LIPITOR [Suspect]
     Indication: ANTIPLATELET THERAPY
     Dosage: 20 MG, 1X/DAY
     Route: 048
     Dates: start: 20110101, end: 20120301

REACTIONS (2)
  - MALAISE [None]
  - VASCULAR DEMENTIA [None]
